FAERS Safety Report 5080095-5 (Version None)
Quarter: 2006Q3

REPORT INFORMATION
  Report Type: 
  Country: None (occurrence: None)
  Receive Date: 20060809
  Receipt Date: 20060728
  Transmission Date: 20061208
  Serious: Yes (Hospitalization)
  Sender: FDA-Public Use
  Company Number: TCI2006A02637

PATIENT
  Age: 66 Year
  Sex: Male

DRUGS (4)
  1. ACTOS [Suspect]
     Indication: DIABETES MELLITUS
     Dosage: 30 MG (30 MG, 1 IN 1 D), PER ORAL
     Route: 048
     Dates: start: 20060406, end: 20060622
  2. DIOVAN [Concomitant]
  3. ADALAT CR              (NIFEDIPINE) [Concomitant]
  4. FLUITRAN              (TRICHLORMETHIAZIDE) [Concomitant]

REACTIONS (8)
  - ALANINE AMINOTRANSFERASE INCREASED [None]
  - ASPARTATE AMINOTRANSFERASE INCREASED [None]
  - BLOOD CREATINE PHOSPHOKINASE INCREASED [None]
  - BRAIN STEM INFARCTION [None]
  - CAROTID ARTERY OCCLUSION [None]
  - GAMMA-GLUTAMYLTRANSFERASE INCREASED [None]
  - INFECTION [None]
  - REFUSAL OF TREATMENT BY PATIENT [None]
